FAERS Safety Report 12634608 (Version 1)
Quarter: 2016Q3

REPORT INFORMATION
  Report Type: Spontaneous
  Country: US (occurrence: US)
  Receive Date: 20160809
  Receipt Date: 20160809
  Transmission Date: 20161109
  Serious: No
  Sender: FDA-Public Use
  Company Number: US-009507513-1608USA003479

PATIENT

DRUGS (1)
  1. KIPRES [Suspect]
     Active Substance: MONTELUKAST SODIUM
     Dosage: STRENGTH 10 MG, UNKNOWN
     Route: 048

REACTIONS (2)
  - Dizziness [Unknown]
  - Blood pressure decreased [Unknown]
